FAERS Safety Report 7821714 (Version 4)
Quarter: 2013Q2

REPORT INFORMATION
  Report Type: Spontaneous
  Country: US (occurrence: None)
  Receive Date: 20101130
  Receipt Date: 20121203
  Transmission Date: 20140414
  Serious: Yes (Hospitalization, Other)
  Sender: FDA-Public Use
  Company Number: 2009SP043048

PATIENT
  Age: 30 Year
  Sex: Female
  Weight: 120.2 kg

DRUGS (2)
  1. NUVARING (ETONOGESTREL (+) ETHINYL ESTRADIOL) VAGINAL RING [Suspect]
     Indication: CONTRACEPTION
     Dates: start: 200811, end: 200812
  2. MULTI-VITAMIN [Concomitant]

REACTIONS (17)
  - PULMONARY EMBOLISM [None]
  - DEEP VEIN THROMBOSIS [None]
  - PREGNANCY [None]
  - SINUSITIS [None]
  - UPPER RESPIRATORY TRACT INFECTION [None]
  - RHINITIS ALLERGIC [None]
  - OEDEMA PERIPHERAL [None]
  - VENOUS INSUFFICIENCY [None]
  - BACK PAIN [None]
  - BLOOD TRIGLYCERIDES INCREASED [None]
  - VOMITING [None]
  - PROTEIN C DECREASED [None]
  - LABORATORY TEST INTERFERENCE [None]
  - DYSPNOEA EXERTIONAL [None]
  - PAIN IN EXTREMITY [None]
  - INFECTIOUS MONONUCLEOSIS [None]
  - BLOOD CHOLESTEROL INCREASED [None]
